FAERS Safety Report 12976725 (Version 1)
Quarter: 2016Q4

REPORT INFORMATION
  Report Type: Spontaneous
  Country: DE (occurrence: DE)
  Receive Date: 20161128
  Receipt Date: 20161128
  Transmission Date: 20170207
  Serious: Yes (Other)
  Sender: FDA-Public Use
  Company Number: PHHY2016DE158058

PATIENT
  Age: 53 Year
  Sex: Male

DRUGS (6)
  1. CRIZOTINIB [Concomitant]
     Active Substance: CRIZOTINIB
     Dosage: UNK
     Route: 065
  2. LDK378 [Suspect]
     Active Substance: CERITINIB
     Dosage: REDUCED DOSE
     Route: 065
  3. VINORELBINE [Concomitant]
     Active Substance: VINORELBINE\VINORELBINE TARTRATE
     Indication: NON-SMALL CELL LUNG CANCER STAGE IV
     Route: 042
  4. LDK378 [Suspect]
     Active Substance: CERITINIB
     Indication: NON-SMALL CELL LUNG CANCER STAGE IV
     Dosage: UNK
     Route: 065
     Dates: end: 201602
  5. CISPLATIN. [Concomitant]
     Active Substance: CISPLATIN
     Indication: NON-SMALL CELL LUNG CANCER STAGE IV
     Route: 042
  6. CRIZOTINIB [Concomitant]
     Active Substance: CRIZOTINIB
     Indication: NON-SMALL CELL LUNG CANCER STAGE IV
     Dosage: UNK
     Route: 065
     Dates: start: 201309, end: 201503

REACTIONS (1)
  - Mucosal inflammation [Unknown]
